FAERS Safety Report 8134263-6 (Version None)
Quarter: 2012Q1

REPORT INFORMATION
  Report Type: 
  Country: None (occurrence: None)
  Receive Date: 20120208
  Receipt Date: 20120125
  Transmission Date: 20120608
  Serious: Yes (Other)
  Sender: FDA-Public Use
  Company Number: 2012P1003301

PATIENT
  Age: 41 Year
  Sex: Female

DRUGS (4)
  1. LAMOTRIGINE [Suspect]
     Indication: SCHIZOPHRENIA, PARANOID TYPE
     Dosage: 150 MG;QD; 250 MG;QD;
  2. LAMOTRIGINE [Suspect]
     Indication: SCHIZOPHRENIA, PARANOID TYPE
     Dosage: 150 MG;QD; 250 MG;QD;
     Dates: start: 20070101
  3. CLONAZAPINE (NO PREF. NAME) [Suspect]
     Indication: SCHIZOPHRENIA, PARANOID TYPE
     Dates: start: 20020101
  4. RISPERIDONE [Concomitant]

REACTIONS (7)
  - SEDATION [None]
  - PSYCHOTIC DISORDER [None]
  - AGRANULOCYTOSIS [None]
  - DRUG INTERACTION [None]
  - CONDITION AGGRAVATED [None]
  - EXTRAPYRAMIDAL DISORDER [None]
  - NO THERAPEUTIC RESPONSE [None]
